FAERS Safety Report 5313881-4 (Version None)
Quarter: 2007Q2

REPORT INFORMATION
  Report Type: 
  Country: None (occurrence: None)
  Receive Date: 20070501
  Receipt Date: 20070417
  Transmission Date: 20071010
  Serious: Yes (Hospitalization)
  Sender: FDA-Public Use
  Company Number: JP-ROCHE-486906

PATIENT
  Age: 4 Year
  Sex: Male
  Weight: 18 kg

DRUGS (5)
  1. TAMIFLU [Suspect]
     Dosage: FORM REPORTED AS DRY SYRUP.
     Route: 048
     Dates: start: 20070302, end: 20070305
  2. PERIACTIN [Concomitant]
     Route: 048
     Dates: start: 20070302, end: 20070303
  3. ASVERIN [Concomitant]
     Route: 048
     Dates: start: 20070302, end: 20070303
  4. CEFOTAX [Concomitant]
     Route: 042
     Dates: start: 20070303, end: 20070308
  5. DIAPP [Concomitant]
     Route: 054
     Dates: start: 20070303, end: 20070303

REACTIONS (8)
  - ABNORMAL BEHAVIOUR [None]
  - CONVULSION [None]
  - DEPRESSED LEVEL OF CONSCIOUSNESS [None]
  - DIZZINESS [None]
  - HALLUCINATION [None]
  - HEADACHE [None]
  - SOMNOLENCE [None]
  - VISUAL DISTURBANCE [None]
